FAERS Safety Report 23666531 (Version 6)
Quarter: 2024Q3

REPORT INFORMATION
  Report Type: Spontaneous
  Country: US (occurrence: US)
  Receive Date: 20240324
  Receipt Date: 20240918
  Transmission Date: 20241016
  Serious: Yes (Other)
  Sender: CSL BEHRING
  Company Number: US-BEH-2024169822

PATIENT
  Age: 62 Year
  Sex: Female

DRUGS (29)
  1. PRIVIGEN [Suspect]
     Active Substance: HUMAN IMMUNOGLOBULIN G
     Indication: Humoral immune defect
     Dosage: 25 GRAM, QMT
     Route: 042
  2. PRIVIGEN [Suspect]
     Active Substance: HUMAN IMMUNOGLOBULIN G
     Indication: Immunodeficiency common variable
     Dosage: 25 GRAM, QMT
     Route: 042
  3. PRIVIGEN [Suspect]
     Active Substance: HUMAN IMMUNOGLOBULIN G
     Dosage: 20 G, QMT
     Route: 042
  4. PRIVIGEN [Suspect]
     Active Substance: HUMAN IMMUNOGLOBULIN G
     Dosage: 25 GRAM, QMT (EVERY 4 WEEKS)
     Route: 042
  5. PILOCARPINE [Concomitant]
     Active Substance: PILOCARPINE
     Dosage: 7.5 MG
     Route: 065
  6. ATROPINE SULFATE [Concomitant]
     Active Substance: ATROPINE SULFATE
     Route: 065
  7. ALPHAGAN P [Concomitant]
     Active Substance: BRIMONIDINE TARTRATE
     Dosage: 0.1 %
     Route: 065
  8. LUMIGAN [Concomitant]
     Active Substance: BIMATOPROST
     Dosage: 0.01 %
     Route: 065
  9. PREDNISOLONE [Concomitant]
     Active Substance: PREDNISOLONE
     Dosage: 1-0.5 %
     Route: 065
  10. BRIMONIDINE TARTRATE [Concomitant]
     Active Substance: BRIMONIDINE TARTRATE
     Route: 065
  11. DORZOLAMIDE HYDROCHLORIDE [Concomitant]
     Active Substance: DORZOLAMIDE HYDROCHLORIDE
     Route: 065
  12. PROPRANOLOL HYDROCHLORIDE [Concomitant]
     Active Substance: PROPRANOLOL HYDROCHLORIDE
     Route: 065
  13. ABILIFY [Concomitant]
     Active Substance: ARIPIPRAZOLE
     Route: 065
  14. AZATHIOPRINE [Concomitant]
     Active Substance: AZATHIOPRINE
     Dosage: 50 MG
     Route: 065
  15. BYSTOLIC [Concomitant]
     Active Substance: NEBIVOLOL HYDROCHLORIDE
     Dosage: 2.5 MG
     Route: 065
  16. CYMBALTA [Concomitant]
     Active Substance: DULOXETINE HYDROCHLORIDE
     Dosage: 60 MG
     Route: 065
  17. DICYCLOMINE [Concomitant]
     Active Substance: DICYCLOMINE HYDROCHLORIDE
     Dosage: 20 MG
     Route: 065
  18. EVOXAC [Concomitant]
     Active Substance: CEVIMELINE HYDROCHLORIDE
     Route: 065
  19. HYDROCORTISON TAB [HYDROCORTISONE] [Concomitant]
     Dosage: 10 MG
     Route: 065
  20. HYDROCORTISON TAB [HYDROCORTISONE] [Concomitant]
     Dosage: 20 UNK
     Route: 065
  21. LEVOTHYROXINE [Concomitant]
     Active Substance: LEVOTHYROXINE\LEVOTHYROXINE SODIUM
     Dosage: 50 MICROGRAMS
     Route: 065
  22. LUNESTA [Concomitant]
     Active Substance: ESZOPICLONE
     Dosage: 3 MG
     Route: 065
  23. OMEPRAZOLE [Concomitant]
     Active Substance: OMEPRAZOLE
     Dosage: 20 MG
     Route: 065
  24. PROMETHAZINE [Concomitant]
     Active Substance: PROMETHAZINE HYDROCHLORIDE
     Dosage: 25 MG
     Route: 065
  25. TOPIRAMATE [Concomitant]
     Active Substance: TOPIRAMATE
     Dosage: 50 MG
     Route: 065
  26. TRAMADOL HCL [Concomitant]
     Active Substance: TRAMADOL HYDROCHLORIDE
     Dosage: 50 MG
     Route: 065
  27. ZOFRAN [Concomitant]
     Active Substance: ONDANSETRON HYDROCHLORIDE
     Dosage: 4 MG
     Route: 065
  28. CETIRIZINE HYDROCHLORIDE [Concomitant]
     Active Substance: CETIRIZINE HYDROCHLORIDE
     Dosage: 10 MG
     Route: 065
  29. ZOFRAN [Concomitant]
     Active Substance: ONDANSETRON HYDROCHLORIDE
     Route: 065

REACTIONS (23)
  - Sjogren^s syndrome [Unknown]
  - Sinusitis [Recovered/Resolved]
  - Sleep disorder [Unknown]
  - Circadian rhythm sleep disorder [Unknown]
  - Headache [Unknown]
  - Fall [Unknown]
  - Concussion [Unknown]
  - Hypersomnia [Unknown]
  - Migraine [Not Recovered/Not Resolved]
  - Nasal congestion [Not Recovered/Not Resolved]
  - Skin laceration [Recovered/Resolved]
  - Head injury [Recovered/Resolved]
  - Nasal injury [Recovered/Resolved]
  - Rhinitis [Recovered/Resolved]
  - Infection [Unknown]
  - COVID-19 [Unknown]
  - Headache [Unknown]
  - Cough [Unknown]
  - COVID-19 [Unknown]
  - Headache [Unknown]
  - Sinusitis [Unknown]
  - Ear infection [Unknown]
  - COVID-19 [Unknown]

NARRATIVE: CASE EVENT DATE: 20240301
